FAERS Safety Report 8150522-5 (Version None)
Quarter: 2012Q1

REPORT INFORMATION
  Report Type: 
  Country: None (occurrence: None)
  Receive Date: 20120220
  Receipt Date: 20120213
  Transmission Date: 20120608
  Serious: Yes (Hospitalization)
  Sender: FDA-Public Use
  Company Number: DK-PFIZER INC-2011269919

PATIENT
  Age: 64 Year
  Sex: Male
  Weight: 81 kg

DRUGS (33)
  1. DOXORUBICIN HCL [Suspect]
     Dosage: 100 MG, 1X/DAY
     Route: 042
     Dates: start: 20110803
  2. PREDNISONE [Suspect]
     Indication: DIFFUSE LARGE B-CELL LYMPHOMA
     Dosage: 100 MG, QD
     Route: 048
     Dates: start: 20110426
  3. VINCRISTINE [Suspect]
     Dosage: 2 MG, 1X/DAY
     Route: 042
     Dates: start: 20110803
  4. LACTULOSE [Concomitant]
     Indication: CONSTIPATION
     Dosage: 25 ML, UNK
     Route: 048
  5. RITUXIMAB [Suspect]
     Dosage: 750 MG, 1X/DAY
     Route: 042
     Dates: start: 20110702
  6. RITUXIMAB [Suspect]
     Dosage: 750 MG, QD
     Route: 042
     Dates: start: 20110803
  7. MORPHINE [Concomitant]
     Indication: PAIN
     Dosage: 10 MG, UNK
     Route: 048
     Dates: start: 20110101
  8. FUROSEMIDE [Concomitant]
     Indication: POLYURIA
     Dosage: 40 MG, UNK
     Route: 048
  9. ENOXAPARIN SODIUM [Concomitant]
     Indication: PAIN
     Dosage: UNK
     Route: 058
     Dates: start: 20110826
  10. AMLODIPINE [Concomitant]
     Indication: HYPERTENSION
     Dosage: UNK
     Route: 048
     Dates: start: 20110415
  11. SULFAMETHOXAZOLE + TRIMETHOPRIM [Concomitant]
     Indication: PROPHYLAXIS
     Dosage: 400 MG, UNK
     Route: 048
     Dates: start: 20110628
  12. RITUXIMAB [Suspect]
     Indication: DIFFUSE LARGE B-CELL LYMPHOMA
     Dosage: 750 MG, QD
     Route: 042
     Dates: start: 20110426
  13. RITUXIMAB [Suspect]
     Dosage: 765 MG, QD
     Route: 042
     Dates: start: 20110503
  14. CYCLOPHOSPHAMIDE [Suspect]
     Indication: DIFFUSE LARGE B-CELL LYMPHOMA
     Dosage: 1500 MG, QD
     Route: 042
     Dates: start: 20110426
  15. VINCRISTINE [Suspect]
     Indication: DIFFUSE LARGE B-CELL LYMPHOMA
     Dosage: 2 MG, QD
     Route: 042
     Dates: start: 20110426
  16. LANSOPRAZOLE [Concomitant]
     Indication: PROPHYLAXIS
     Dosage: UNK
     Route: 048
     Dates: start: 20110101
  17. ELECTROLYTES NOS/MACROGOL [Concomitant]
  18. PREDNISONE [Suspect]
     Dosage: 100 MG, 1X/DAY
     Route: 048
     Dates: start: 20110628
  19. VINCRISTINE [Suspect]
     Dosage: 2 MG, 1X/DAY
     Route: 042
     Dates: start: 20110628
  20. ACYCLOVIR [Concomitant]
     Indication: PROPHYLAXIS
     Dosage: 400 MG, UNK
     Route: 048
     Dates: start: 20110412
  21. NEUPOGEN [Suspect]
     Dosage: 6 MG, UNK
     Route: 058
     Dates: start: 20110804
  22. RITUXIMAB [Suspect]
     Dosage: 750 MG, UNK
     Route: 042
     Dates: start: 20110628
  23. CYCLOPHOSPHAMIDE [Suspect]
     Dosage: 1500 MG, 1X/DAY
     Route: 042
     Dates: start: 20110803
  24. ALLOPURINOL [Concomitant]
     Indication: PROPHYLAXIS
     Dosage: UNK
     Route: 048
     Dates: start: 20110412, end: 20110708
  25. BRAN/FIG/SENNOSIDE A+B [Concomitant]
  26. NEUPOGEN [Suspect]
     Indication: DIFFUSE LARGE B-CELL LYMPHOMA
     Dosage: 6 MG, UNK
     Route: 058
     Dates: start: 20110427
  27. NEUPOGEN [Suspect]
     Dosage: 6 MG, UNK
     Route: 058
     Dates: start: 20110629
  28. MORPHINE SULFATE [Concomitant]
  29. DOXORUBICIN HCL [Suspect]
     Indication: DIFFUSE LARGE B-CELL LYMPHOMA
     Dosage: 100 MG, 1X/DAY
     Route: 042
     Dates: start: 20110426
  30. DOXORUBICIN HCL [Suspect]
     Dosage: 100 MG, 1X/DAY
     Route: 042
     Dates: start: 20110628
  31. PREDNISONE [Suspect]
     Dosage: 8800 MG, 1X/DAY
     Dates: start: 20110803
  32. CYCLOPHOSPHAMIDE [Suspect]
     Dosage: 1500 MG, 1X/DAY
     Route: 042
     Dates: start: 20110628
  33. MOVIPREP [Concomitant]
     Indication: CONSTIPATION

REACTIONS (5)
  - MUSCLE RUPTURE [None]
  - PNEUMONIA [None]
  - FEBRILE NEUTROPENIA [None]
  - PULMONARY EMBOLISM [None]
  - PYREXIA [None]
